FAERS Safety Report 7073837-0 (Version None)
Quarter: 2010Q4

REPORT INFORMATION
  Report Type: 
  Country: None (occurrence: None)
  Receive Date: 20101029
  Receipt Date: 20100901
  Transmission Date: 20110411
  Serious: No
  Sender: FDA-Public Use
  Company Number: A0877249A

PATIENT
  Age: 63 Year
  Sex: Female

DRUGS (5)
  1. ADVAIR DISKUS 100/50 [Suspect]
     Indication: CHRONIC OBSTRUCTIVE PULMONARY DISEASE
     Dosage: 1PUFF TWICE PER DAY
     Route: 055
     Dates: start: 20100506
  2. SEROQUEL [Concomitant]
  3. DEPAKOTE [Concomitant]
  4. LEVOTHYROXINE SODIUM [Concomitant]
  5. FOSAMAX [Concomitant]

REACTIONS (3)
  - EYE DISORDER [None]
  - VISION BLURRED [None]
  - VISUAL IMPAIRMENT [None]
